FAERS Safety Report 10061514 (Version 2)
Quarter: 2014Q2

REPORT INFORMATION
  Report Type: Spontaneous
  Country: FR (occurrence: FR)
  Receive Date: 20140407
  Receipt Date: 20140521
  Transmission Date: 20141212
  Serious: Yes (Other)
  Sender: FDA-Public Use
  Company Number: FR-ELI_LILLY_AND_COMPANY-FR201404000713

PATIENT
  Age: 30 Year
  Sex: Male

DRUGS (9)
  1. OLANZAPINE [Suspect]
     Indication: PSYCHOTIC DISORDER
     Route: 065
  2. PIPERACILLIN [Suspect]
     Indication: BRAIN ABSCESS
     Route: 065
  3. RIFAMPICIN [Suspect]
     Indication: BRAIN ABSCESS
     Route: 065
  4. FOSFOMYCIN [Suspect]
     Indication: BRAIN ABSCESS
     Route: 065
  5. CARBAMAZEPINE [Interacting]
     Indication: PRODUCT USED FOR UNKNOWN INDICATION
     Route: 065
  6. IOBITRIDOL [Suspect]
     Indication: PRODUCT USED FOR UNKNOWN INDICATION
     Route: 065
  7. CEFTRIAXONE [Concomitant]
     Indication: PRODUCT USED FOR UNKNOWN INDICATION
     Route: 065
  8. CYAMEMAZINE [Concomitant]
     Indication: PSYCHOTIC DISORDER
     Route: 065
  9. CEFOTAXIM [Concomitant]
     Indication: BRAIN ABSCESS
     Route: 065

REACTIONS (2)
  - Drug reaction with eosinophilia and systemic symptoms [Recovered/Resolved]
  - Drug interaction [Recovered/Resolved]
